FAERS Safety Report 9862645 (Version 2)
Quarter: 2014Q1

REPORT INFORMATION
  Report Type: Spontaneous
  Country: US (occurrence: US)
  Receive Date: 20140203
  Receipt Date: 20140307
  Transmission Date: 20141002
  Serious: Yes (Death, Hospitalization)
  Sender: FDA-Public Use
  Company Number: GXBR2014US000579

PATIENT
  Age: 69 Year
  Sex: Male
  Weight: 121.1 kg

DRUGS (21)
  1. ENOXAPARIN SODIUM [Suspect]
     Indication: ANTICOAGULANT THERAPY
     Dosage: 120 MG, BID
     Route: 058
     Dates: start: 20140108, end: 20140120
  2. WARFARIN SODIUM [Suspect]
     Indication: ATRIAL FIBRILLATION
     Dosage: 5MG FRI THOUGH SUN, 2.5MG MON THOUGH THU ^UNTIL INR THERAPEUTIC^
     Route: 048
     Dates: start: 20140113, end: 20140120
  3. WARFARIN SODIUM TABLETS USP 10MG [Suspect]
     Indication: PERIPHERAL VASCULAR DISORDER
     Dosage: 5MG MON + TUE, 2.5MG WED THROUGH SUN
     Route: 048
     Dates: end: 20140108
  4. LASIX [Concomitant]
     Indication: OEDEMA
     Dosage: 40 MG, UNK
  5. MIRALAX [Concomitant]
     Indication: CONSTIPATION
     Dosage: UNK DF, PRN
  6. SINGULAIR [Concomitant]
     Indication: CHRONIC OBSTRUCTIVE PULMONARY DISEASE
     Dosage: 10 MG, QD
     Route: 048
  7. TOPROL XL [Concomitant]
     Indication: HYPERTENSION
     Dosage: 100 MG, QD
  8. DEXILANT [Concomitant]
     Indication: BARRETT^S OESOPHAGUS
     Dosage: UNK DF, UNK
  9. LANTUS [Concomitant]
     Indication: DIABETES MELLITUS
     Dosage: 40 U, QD
  10. SPIRIVA [Concomitant]
     Indication: CHRONIC OBSTRUCTIVE PULMONARY DISEASE
     Dosage: UNK DF, UNK
  11. LYRICA [Concomitant]
     Indication: NEUROPATHY PERIPHERAL
     Dosage: 75 MG, BID
  12. KLOR-CON [Concomitant]
     Indication: SUPPLEMENTATION THERAPY
     Dosage: 20 MEQ, UNK
  13. PLETAL [Concomitant]
     Indication: PERIPHERAL VASCULAR DISORDER
     Dosage: UNK DF, UNK
  14. SYMBICORT [Concomitant]
     Indication: CHRONIC OBSTRUCTIVE PULMONARY DISEASE
     Dosage: 80/4.5, 2 PUFFS BID
     Route: 055
  15. COMBIVENT RESPIMAT [Concomitant]
     Indication: CHRONIC OBSTRUCTIVE PULMONARY DISEASE
     Dosage: UNK DF, UNK
  16. MARIJUANA [Concomitant]
     Indication: PAIN
     Dosage: MEDICAL MARIJUANA COOKIES
  17. ASPIRIN [Concomitant]
     Indication: CARDIOVASCULAR EVENT PROPHYLAXIS
     Dosage: 81 MG, QD
  18. FISH OIL [Concomitant]
     Dosage: UNK DF, UNK
  19. VITAMIN D3 [Concomitant]
     Dosage: UNK DF, UNK
  20. GAS-X [Concomitant]
     Dosage: UNK DF, PRN
  21. ACIDOPHILUS [Concomitant]
     Dosage: UNK DF, PRN

REACTIONS (10)
  - Cardiac arrest [Fatal]
  - Brain death [Fatal]
  - Haemorrhage [Fatal]
  - Pelvic haematoma [Fatal]
  - Intra-abdominal haematoma [Fatal]
  - Abdominal pain [Fatal]
  - Flank pain [Fatal]
  - Abdominal distension [Fatal]
  - Local swelling [Fatal]
  - Product quality issue [Unknown]
